FAERS Safety Report 7455446-4 (Version None)
Quarter: 2011Q2

REPORT INFORMATION
  Report Type: 
  Country: None (occurrence: None)
  Receive Date: 20110503
  Receipt Date: 20110428
  Transmission Date: 20111010
  Serious: Yes (Other)
  Sender: FDA-Public Use
  Company Number: US-ABBOTT-11P-163-0722544-00

PATIENT
  Age: 77 Year
  Sex: Female

DRUGS (4)
  1. HUMIRA [Suspect]
     Indication: RHEUMATOID ARTHRITIS
     Dates: start: 20100401
  2. PROCARDIA [Concomitant]
     Indication: HYPERTENSION
  3. PREDNISONE [Concomitant]
     Indication: RHEUMATOID ARTHRITIS
  4. EYE DROPS [Concomitant]
     Indication: PRODUCT USED FOR UNKNOWN INDICATION

REACTIONS (11)
  - PAIN [None]
  - INCORRECT STORAGE OF DRUG [None]
  - RHEUMATOID ARTHRITIS [None]
  - CEREBROVASCULAR ACCIDENT [None]
  - RETINAL DETACHMENT [None]
  - ARTHRITIS [None]
  - MUSCLE SPASMS [None]
  - BONE DISORDER [None]
  - DRUG INEFFECTIVE [None]
  - PAIN IN EXTREMITY [None]
  - POOR QUALITY DRUG ADMINISTERED [None]
